FAERS Safety Report 9165773 (Version 2)
Quarter: 2013Q2

REPORT INFORMATION
  Report Type: Spontaneous
  Country: US (occurrence: US)
  Receive Date: 20130315
  Receipt Date: 20130405
  Transmission Date: 20140414
  Serious: Yes (Other)
  Sender: FDA-Public Use
  Company Number: US-BAYER-2013-032579

PATIENT
  Age: 77 Year
  Sex: Male
  Weight: 77.57 kg

DRUGS (21)
  1. XARELTO [Suspect]
     Indication: CEREBROVASCULAR ACCIDENT PROPHYLAXIS
     Dosage: 15 MG, QD
     Route: 048
     Dates: start: 20130112, end: 20130122
  2. XARELTO [Interacting]
     Indication: ATRIAL FIBRILLATION
  3. ACETYLSALICYLIC ACID({=100 MG) [Interacting]
     Indication: ATRIAL FIBRILLATION
     Dosage: 81 MG, QD
     Route: 048
     Dates: start: 20130108
  4. PLAVIX [Interacting]
     Indication: ANTICOAGULANT THERAPY
     Dosage: 75 MG
     Route: 048
     Dates: start: 20130108
  5. CLOBETASOL PROPIONATE [Concomitant]
     Indication: ECZEMA
     Dosage: .05 %, QD
     Route: 061
     Dates: start: 201209
  6. AMLODIPINE [Concomitant]
     Indication: ATRIAL FIBRILLATION
     Dosage: 200 MG, BID
     Route: 048
     Dates: start: 20130108
  7. CARVEDILOL [Concomitant]
     Indication: BLOOD PRESSURE ABNORMAL
     Dosage: 3.125 MG, BID
     Route: 048
     Dates: start: 201203
  8. CRESTOR [Concomitant]
     Indication: BLOOD CHOLESTEROL ABNORMAL
     Dosage: 20 MG, QD
     Route: 048
     Dates: start: 20130108
  9. GLIPIZIDE ER [Concomitant]
     Indication: DIABETES MELLITUS
     Dosage: 2.5 MG, QD
     Route: 048
     Dates: start: 20130108
  10. KLOR-CON [Concomitant]
     Indication: MINERAL SUPPLEMENTATION
     Dosage: 10 MG, UNK
     Route: 048
     Dates: start: 201206
  11. LEVOTHYROXINE [Concomitant]
     Indication: THYROID DISORDER
     Dosage: 25 ?G, QD
     Route: 048
     Dates: start: 201209
  12. LASIX [Concomitant]
     Indication: DIURETIC THERAPY
     Dosage: 40 MG, QD
     Route: 048
     Dates: start: 201206
  13. LASIX [Concomitant]
     Indication: DIURETIC THERAPY
  14. METOLAZONE [Concomitant]
     Indication: DIURETIC THERAPY
     Dosage: 5 MG, OW
     Route: 048
     Dates: start: 20130108
  15. NITROGLYCERINE [Concomitant]
     Indication: CHEST PAIN
     Dosage: .4 MG, UNK
     Route: 048
     Dates: start: 2010
  16. PACERONE [Concomitant]
     Dosage: 200 MG, QD
     Route: 065
  17. AMOXICILLIN W/CLAVULANIC ACID [Concomitant]
     Route: 065
  18. COENZYME Q-GEL [Concomitant]
     Dosage: 100 MG, QD
     Route: 065
  19. OMEGA 3 FISH OIL [Concomitant]
     Dosage: 1000 IU, BID
     Route: 065
  20. VITAMIN D3 [Concomitant]
     Dosage: 2000 IU, TID
     Route: 065
  21. ASCORBIC ACID [Concomitant]

REACTIONS (3)
  - Haemorrhage subcutaneous [Not Recovered/Not Resolved]
  - Cellulitis [Recovered/Resolved]
  - Mucosal haemorrhage [None]
